FAERS Safety Report 10511837 (Version 1)
Quarter: 2014Q4

REPORT INFORMATION
  Report Type: Spontaneous
  Country: BE (occurrence: BE)
  Receive Date: 20141010
  Receipt Date: 20141010
  Transmission Date: 20150528
  Serious: Yes (Other)
  Sender: FDA-Public Use
  Company Number: BE-PFIZER INC-2014278034

PATIENT
  Age: 50 Year
  Sex: Male

DRUGS (1)
  1. PANTOMED [Suspect]
     Active Substance: DEXPANTHENOL
     Dosage: UNK
     Route: 048

REACTIONS (1)
  - Bladder obstruction [Unknown]
